FAERS Safety Report 17626612 (Version 1)
Quarter: 2020Q2

REPORT INFORMATION
  Report Type: Spontaneous
  Country: US (occurrence: US)
  Receive Date: 20200405
  Receipt Date: 20200405
  Transmission Date: 20200713
  Serious: Yes (Other)
  Sender: FDA-Public Use
  Company Number: US-ACCORD-154126

PATIENT
  Age: 65 Year
  Sex: Female

DRUGS (6)
  1. TOPIRAMATE. [Suspect]
     Active Substance: TOPIRAMATE
     Indication: RADICULAR PAIN
     Dosage: DOSE CHANGE OCCURRED IN THE EVENING
  2. METHYLPREDNISONE [Concomitant]
     Active Substance: METHYLPREDNISOLONE
     Indication: ADRENOCORTICAL STEROID THERAPY
  3. TOPIRAMATE. [Suspect]
     Active Substance: TOPIRAMATE
     Indication: BACK PAIN
     Dosage: IMMEDIATE RELEASE FORMULATION EVERY EVENING
  4. LIDOCAINE. [Concomitant]
     Active Substance: LIDOCAINE
     Indication: ADRENOCORTICAL STEROID THERAPY
     Dosage: 5% LIDOCAINE 5ML
  5. TOPIRAMATE. [Suspect]
     Active Substance: TOPIRAMATE
     Indication: BACK PAIN
     Dosage: IN MONTH 3
  6. OMNIPAQUE [Concomitant]
     Active Substance: IOHEXOL
     Indication: ADRENOCORTICAL STEROID THERAPY
     Dosage: 300 MG IODINE/ML INTRAVENOUS SOLUTION
     Route: 042

REACTIONS (5)
  - Tremor [Recovered/Resolved]
  - Myalgia [Recovered/Resolved]
  - Drug dependence [Recovered/Resolved]
  - Withdrawal syndrome [Recovered/Resolved]
  - Off label use [Unknown]
